FAERS Safety Report 22011085 (Version 3)
Quarter: 2023Q2

REPORT INFORMATION
  Report Type: Spontaneous
  Country: CA (occurrence: CA)
  Receive Date: 20230220
  Receipt Date: 20230412
  Transmission Date: 20230722
  Serious: Yes (Other)
  Sender: FDA-Public Use
  Company Number: CA-PFIZER INC-202201287105

PATIENT
  Age: 50 Year
  Sex: Female

DRUGS (5)
  1. ABRILADA [Suspect]
     Active Substance: ADALIMUMAB-AFZB
     Indication: Colitis ulcerative
     Dosage: 40 MG, EVERY 2 WEEKS, 160MG WEEK 0, 80MG WEEK 2, THEN 40MG EVERY 2 WEEKS AS OF WEEK 4
     Route: 058
     Dates: start: 20220901, end: 202211
  2. ABRILADA [Suspect]
     Active Substance: ADALIMUMAB-AFZB
     Dosage: 40 MG, 160MG WEEK 0, 80MG WEEK 2, THEN 40MG EVERY 2 WEEKS AS OF WEEK 4, NOT YET STARTED
     Route: 058
  3. ABRILADA [Suspect]
     Active Substance: ADALIMUMAB-AFZB
     Dosage: 40 MG, EVERY WEEK, PREFILLED PEN
     Route: 058
     Dates: start: 202211, end: 202302
  4. ABRILADA [Suspect]
     Active Substance: ADALIMUMAB-AFZB
     Dosage: 1 DF RELOAD:160MG WEEK 0, 80MG WEEK 2, THEN 40MG EVERY WEEK AS OF WEEK 4, PREFILLED PEN
     Route: 058
     Dates: start: 2023
  5. ABRILADA [Suspect]
     Active Substance: ADALIMUMAB-AFZB
     Dosage: 1 DF RELOAD:160MG WEEK 0, 80MG WEEK 2, THEN 40MG EVERY WEEK AS OF WEEK 4, PREFILLED PEN
     Route: 058
     Dates: start: 20230404

REACTIONS (8)
  - Haematochezia [Unknown]
  - C-reactive protein increased [Not Recovered/Not Resolved]
  - Exposure to SARS-CoV-2 [Unknown]
  - Faecal calprotectin increased [Not Recovered/Not Resolved]
  - Hidradenitis [Not Recovered/Not Resolved]
  - Abdominal pain [Unknown]
  - Product temperature excursion issue [Unknown]
  - Off label use [Unknown]

NARRATIVE: CASE EVENT DATE: 20220101
